FAERS Safety Report 13707723 (Version 1)
Quarter: 2017Q2

REPORT INFORMATION
  Report Type: Spontaneous
  Country: US (occurrence: US)
  Receive Date: 20170630
  Receipt Date: 20170630
  Transmission Date: 20170830
  Serious: No
  Sender: FDA-Public Use
  Company Number: PHEH2017US018976

PATIENT
  Sex: Male
  Weight: 28 kg

DRUGS (3)
  1. TRILEPTAL [Suspect]
     Active Substance: OXCARBAZEPINE
     Indication: SEIZURE
     Dosage: 4 ML, BID
     Route: 048
  2. QUILLIVANT XR [Interacting]
     Active Substance: METHYLPHENIDATE HYDROCHLORIDE
     Indication: ATTENTION DEFICIT/HYPERACTIVITY DISORDER
     Dosage: 4 ML, QD
     Route: 048
  3. QUILLIVANT XR [Interacting]
     Active Substance: METHYLPHENIDATE HYDROCHLORIDE
     Dosage: 25 ML, QD
     Route: 048

REACTIONS (1)
  - Drug interaction [Not Recovered/Not Resolved]
